FAERS Safety Report 8262574-2 (Version None)
Quarter: 2012Q2

REPORT INFORMATION
  Report Type: 
  Country: None (occurrence: None)
  Receive Date: 20120405
  Receipt Date: 20120402
  Transmission Date: 20120825
  Serious: Yes (Other)
  Sender: FDA-Public Use
  Company Number: US-PFIZER INC-2012083208

PATIENT
  Sex: Female
  Weight: 56.689 kg

DRUGS (4)
  1. XANAX [Suspect]
     Indication: DEPRESSION
  2. CHANTIX [Suspect]
     Indication: SMOKING CESSATION THERAPY
     Dosage: 0.5 MG, DAILY
     Dates: start: 20120329, end: 20120101
  3. CHANTIX [Suspect]
     Dosage: 0.5 MG, 2X/DAY
     Dates: start: 20120101
  4. XANAX [Suspect]
     Indication: ANXIETY
     Dosage: 0.5 MG, ONE TO TWO TIMES A DAY AS NEEDED

REACTIONS (3)
  - FRUSTRATION [None]
  - CRYING [None]
  - DEPRESSION [None]
